FAERS Safety Report 13986940 (Version 1)
Quarter: 2017Q3

REPORT INFORMATION
  Report Type: Report from Study
  Country: US (occurrence: US)
  Receive Date: 20170919
  Receipt Date: 20170919
  Transmission Date: 20171128
  Serious: Yes (Hospitalization)
  Sender: FDA-Public Use
  Company Number: US-OTSUKA-2017_020083

PATIENT
  Age: 62 Year
  Sex: Male

DRUGS (1)
  1. TOLVAPTAN [Suspect]
     Active Substance: TOLVAPTAN
     Indication: BLOOD ANTIDIURETIC HORMONE
     Dosage: 15 MG, QD (STRENGTH: 15 MG)
     Route: 048
     Dates: start: 20170911

REACTIONS (2)
  - Intensive care [Unknown]
  - Off label use [Unknown]

NARRATIVE: CASE EVENT DATE: 201709
